FAERS Safety Report 9714225 (Version 1)
Quarter: 2013Q4

REPORT INFORMATION
  Report Type: Spontaneous
  Country: US (occurrence: US)
  Receive Date: 20131126
  Receipt Date: 20131126
  Transmission Date: 20140711
  Serious: No
  Sender: FDA-Public Use
  Company Number: US-GILEAD-2008-0019430

PATIENT
  Age: 76 Year
  Sex: Female
  Weight: 72.57 kg

DRUGS (9)
  1. LETAIRIS [Suspect]
     Indication: PULMONARY HYPERTENSION
     Route: 048
     Dates: start: 20071010
  2. TOPROL XL [Concomitant]
  3. ISORDIL [Concomitant]
  4. ASA [Concomitant]
  5. PLAVIX [Concomitant]
  6. RANEXA [Concomitant]
  7. REGLAN [Concomitant]
  8. NEXIUM [Concomitant]
  9. TEMAZEPAM [Concomitant]

REACTIONS (4)
  - Upper respiratory tract infection [Not Recovered/Not Resolved]
  - Dyspnoea [Not Recovered/Not Resolved]
  - Swelling [Not Recovered/Not Resolved]
  - Oedema [Not Recovered/Not Resolved]
